FAERS Safety Report 9563780 (Version 1)
Quarter: 2013Q3

REPORT INFORMATION
  Report Type: Spontaneous
  Country: US (occurrence: None)
  Receive Date: 20130926
  Receipt Date: 20130926
  Transmission Date: 20140515
  Serious: Yes (Disabling)
  Sender: FDA-Public Use
  Company Number: None

PATIENT
  Age: 89 Year
  Sex: Female
  Weight: 90.72 kg

DRUGS (1)
  1. TRAMADOL [Suspect]
     Dosage: 4 TIMES A WEEK
     Route: 048
     Dates: start: 20130912, end: 20130914

REACTIONS (2)
  - Fall [None]
  - Back injury [None]
